FAERS Safety Report 4597599-1 (Version None)
Quarter: 2005Q1

REPORT INFORMATION
  Report Type: 
  Country: None (occurrence: None)
  Receive Date: 20050228
  Receipt Date: 20050228
  Transmission Date: 20050727
  Serious: Yes (Other)
  Sender: FDA-Public Use
  Company Number: None

PATIENT
  Age: 68 Year
  Sex: Male
  Weight: 87.0906 kg

DRUGS (4)
  1. CHLORHEXIDINE GLUCONATE [Suspect]
     Indication: PERIODONTAL DISEASE
     Dates: start: 20041015, end: 20041017
  2. LOTRELL [Concomitant]
  3. PAXIL [Concomitant]
  4. NEXIUM [Concomitant]

REACTIONS (2)
  - DYSGEUSIA [None]
  - WEIGHT DECREASED [None]
